FAERS Safety Report 8211737-0 (Version None)
Quarter: 2012Q1

REPORT INFORMATION
  Report Type: 
  Country: None (occurrence: None)
  Receive Date: 20120315
  Receipt Date: 20120307
  Transmission Date: 20120608
  Serious: Yes (Death, Hospitalization)
  Sender: FDA-Public Use
  Company Number: GB-JNJFOC-20100402221

PATIENT
  Sex: Male

DRUGS (12)
  1. IRBESARTAN [Concomitant]
     Indication: HYPERTENSION
     Route: 048
     Dates: start: 20070713, end: 20100319
  2. LANSOPRAZOLE [Concomitant]
     Indication: GASTROOESOPHAGEAL REFLUX DISEASE
     Route: 048
     Dates: start: 20090420, end: 20100319
  3. LOPERAMIDE [Concomitant]
     Indication: DIARRHOEA
     Route: 048
     Dates: start: 20100223, end: 20100319
  4. ATENOLOL [Concomitant]
     Indication: HYPERTENSION
     Route: 048
     Dates: start: 20070706, end: 20100319
  5. ABIRATERONE ACETATE [Suspect]
     Route: 048
  6. CYCLIZINE [Concomitant]
     Indication: ANTIEMETIC SUPPORTIVE CARE
     Route: 030
     Dates: start: 20100318, end: 20100319
  7. ADCAL D3 [Concomitant]
     Indication: MEDICAL DIET
     Route: 048
     Dates: start: 20050131, end: 20100319
  8. DICLOFENAC SODIUM [Concomitant]
     Indication: DISEASE PROGRESSION
     Route: 048
     Dates: start: 20091007, end: 20100319
  9. PROCHLORPERAZINE [Concomitant]
     Indication: VOMITING
     Route: 030
     Dates: start: 20100318, end: 20100318
  10. PROSTEP [Concomitant]
     Indication: PROSTATE CANCER METASTATIC
     Route: 058
     Dates: start: 20091124
  11. ABIRATERONE ACETATE [Suspect]
     Indication: PROSTATE CANCER METASTATIC
     Route: 048
     Dates: start: 20091124, end: 20100318
  12. PREDNISOLONE [Suspect]
     Indication: PROSTATE CANCER METASTATIC
     Route: 048
     Dates: start: 20091124

REACTIONS (2)
  - INTESTINAL ISCHAEMIA [None]
  - PROSTATE CANCER METASTATIC [None]
